FAERS Safety Report 9198433 (Version 1)
Quarter: 2013Q1

REPORT INFORMATION
  Report Type: Spontaneous
  Country: US (occurrence: None)
  Receive Date: 20130327
  Receipt Date: 20130327
  Transmission Date: 20140127
  Serious: Yes (Other)
  Sender: FDA-Public Use
  Company Number: None

PATIENT
  Age: 64 Year
  Sex: Female
  Weight: 74.84 kg

DRUGS (1)
  1. BENICAR HCT 40-25 SANKYO [Suspect]
     Indication: HYPERTENSION
     Dosage: 40-25  DAILY PO
     Route: 048
     Dates: start: 20130203, end: 20130326

REACTIONS (1)
  - Alopecia [None]
